FAERS Safety Report 5170656-7 (Version None)
Quarter: 2006Q4

REPORT INFORMATION
  Report Type: 
  Country: None (occurrence: None)
  Receive Date: 20061205
  Receipt Date: 20061116
  Transmission Date: 20070319
  Serious: Yes (Other)
  Sender: FDA-Public Use
  Company Number: 2006SP006799

PATIENT
  Age: 29 Year
  Sex: Female

DRUGS (2)
  1. INTERFERON ALFA-2B [Suspect]
     Indication: MALIGNANT MELANOMA
     Dosage: IV;  TIW;SC
     Route: 042
  2. INTERFERON ALFA-2B [Suspect]
     Indication: MALIGNANT MELANOMA
     Dosage: IV;  TIW;SC
     Route: 042

REACTIONS (10)
  - ARTHRALGIA [None]
  - ASTHENIA [None]
  - DISEASE RECURRENCE [None]
  - FATIGUE [None]
  - INSOMNIA [None]
  - MIXED CONNECTIVE TISSUE DISEASE [None]
  - MOOD ALTERED [None]
  - RAYNAUD'S PHENOMENON [None]
  - SWELLING [None]
  - TENDERNESS [None]
